FAERS Safety Report 16975391 (Version 1)
Quarter: 2019Q4

REPORT INFORMATION
  Report Type: Spontaneous
  Country: GB (occurrence: GB)
  Receive Date: 20191030
  Receipt Date: 20191030
  Transmission Date: 20200122
  Serious: Yes (Hospitalization)
  Sender: FDA-Public Use
  Company Number: GB-MYLANLABS-2019M1102860

PATIENT
  Age: 77 Year
  Sex: Female
  Weight: 50.7 kg

DRUGS (22)
  1. AZITHROMYCIN ANHYDROUS. [Concomitant]
     Active Substance: AZITHROMYCIN ANHYDROUS
     Dosage: MONDAY, WEDNESDAY, FRIDAY. 200MG/5ML
  2. ACIDEX                             /01521901/ [Concomitant]
     Active Substance: CALCIUM CARBONATE\SODIUM ALGINATE\SODIUM BICARBONATE
     Dosage: 10-20ML AFTER MEALS AND AT NIGHT
  3. OMEPRAZOLE. [Concomitant]
     Active Substance: OMEPRAZOLE
     Dosage: 80 MILLIGRAM, QD
  4. DUORESP SPIROMAX [Concomitant]
     Active Substance: BUDESONIDE\FORMOTEROL
     Dosage: 2 DOSAGE FORM, QD, 320/9
     Route: 055
  5. CHLORPHENAMINE [Concomitant]
     Active Substance: CHLORPHENIRAMINE MALEATE
     Dosage: 4 MILLIGRAM, PRN, 4-6 HOURLY
  6. TRAMADOL. [Concomitant]
     Active Substance: TRAMADOL
     Dosage: UNK UNK, PRN, 50 TO 100MG FOUR TIMES DAILY
  7. IBUPROFEN. [Concomitant]
     Active Substance: IBUPROFEN
     Dosage: UNK UNK, PRN, UP TO 3-4 TIMES/DAY
  8. CIPROFLOXACIN. [Interacting]
     Active Substance: CIPROFLOXACIN
     Indication: CHRONIC OBSTRUCTIVE PULMONARY DISEASE
     Dosage: 1500 MILLIGRAM, QD
     Route: 048
     Dates: start: 20190912, end: 20191010
  9. CODEINE [Concomitant]
     Active Substance: CODEINE
     Dosage: 30-60MG FOUR TIMES DAILY.ACUTE
     Dates: start: 20190708
  10. CARBOCISTEINE [Concomitant]
     Active Substance: CARBOCYSTEINE
     Dosage: 1500 MILLIGRAM, QD
  11. SIMVASTATIN. [Suspect]
     Active Substance: SIMVASTATIN
     Indication: CARDIOVASCULAR EVENT PROPHYLAXIS
     Dosage: 40 MILLIGRAM, QD, AT NIGHT
     Route: 048
     Dates: start: 20180905, end: 20191013
  12. PREDNISOLONE. [Interacting]
     Active Substance: PREDNISOLONE
     Indication: CHRONIC OBSTRUCTIVE PULMONARY DISEASE
     Dosage: 30 MILLIGRAM, QD, IN THE MORNING
     Route: 048
     Dates: start: 20190912, end: 20191010
  13. SPIRIVA [Concomitant]
     Active Substance: TIOTROPIUM BROMIDE MONOHYDRATE
     Dosage: 2 DOSAGE FORM, QD
     Route: 055
  14. FORTISIP [Concomitant]
     Active Substance: CARBOHYDRATES\FATTY ACIDS\MINERALS\PROTEIN\VITAMINS
     Dosage: ACUTE, MULTIPLE ISSUES
  15. RIVAROXABAN [Concomitant]
     Active Substance: RIVAROXABAN
     Dosage: 20 MILLIGRAM, QD
  16. MEBEVERINE [Concomitant]
     Active Substance: MEBEVERINE
     Dosage: THREE TIMES DAILY
  17. FLUCONAZOLE. [Interacting]
     Active Substance: FLUCONAZOLE
     Indication: ORAL CANDIDIASIS
     Dosage: 150 MILLIGRAM, PRN
     Route: 048
     Dates: start: 20191007, end: 20191008
  18. CITALOPRAM [Concomitant]
     Active Substance: CITALOPRAM HYDROBROMIDE
     Dosage: 40 MILLIGRAM, QD
  19. MACROGOL [Concomitant]
     Active Substance: POLYETHYLENE GLYCOLS
     Dosage: 1 DOSAGE FORM, PRN
  20. PROCHLORPERAZINE. [Concomitant]
     Active Substance: PROCHLORPERAZINE
     Dosage: 5 MILLIGRAM, PRN, THREE TIMES DAILY
  21. VENTOLIN [Concomitant]
     Active Substance: ALBUTEROL SULFATE
     Dosage: 2 DOSAGE FORM, PRN
  22. AMITRIPTYLINE [Concomitant]
     Active Substance: AMITRIPTYLINE
     Dosage: 10 MILLIGRAM, QD, AT NIGHT. ACUTE
     Dates: start: 20190917

REACTIONS (6)
  - Dyspnoea [Not Recovered/Not Resolved]
  - Drug interaction [Unknown]
  - Abdominal pain [Recovering/Resolving]
  - Diarrhoea [Unknown]
  - Pancreatitis acute [Recovering/Resolving]
  - Chest pain [Recovering/Resolving]

NARRATIVE: CASE EVENT DATE: 20191013
